FAERS Safety Report 4573088-5 (Version None)
Quarter: 2005Q1

REPORT INFORMATION
  Report Type: 
  Country: None (occurrence: None)
  Receive Date: 20050118
  Receipt Date: 20040609
  Transmission Date: 20050727
  Serious: Yes (Other)
  Sender: FDA-Public Use
  Company Number: HQWYE451715JUN04

PATIENT
  Sex: Female

DRUGS (2)
  1. PREMPRO [Suspect]
  2. ESTROGEN NOS (ESTROGEN NOS) [Suspect]

REACTIONS (3)
  - BREAST CANCER [None]
  - CEREBROVASCULAR ACCIDENT [None]
  - MYOCARDIAL INFARCTION [None]
